FAERS Safety Report 20782099 (Version 1)
Quarter: 2022Q2

REPORT INFORMATION
  Report Type: Spontaneous
  Country: US (occurrence: US)
  Receive Date: 20220504
  Receipt Date: 20220504
  Transmission Date: 20220721
  Serious: No
  Sender: FDA-Public Use
  Company Number: US-BRISTOL-MYERS SQUIBB COMPANY-2022-017315

PATIENT
  Age: 66 Year
  Sex: Female
  Weight: 75.296 kg

DRUGS (1)
  1. REVLIMID [Suspect]
     Active Substance: LENALIDOMIDE
     Indication: Plasma cell myeloma
     Dosage: FREQUENCY : DAILY FOR 3 WEEKS ON  1 WEEK OFF
     Route: 048

REACTIONS (1)
  - Rash [Recovered/Resolved]
